FAERS Safety Report 4304591-0 (Version None)
Quarter: 2004Q1

REPORT INFORMATION
  Report Type: 
  Country: None (occurrence: None)
  Receive Date: 20040226
  Receipt Date: 20040109
  Transmission Date: 20041129
  Serious: Yes (Life-Threatening)
  Sender: FDA-Public Use
  Company Number: 200410046JP

PATIENT
  Age: 72 Year
  Sex: Female
  Weight: 54 kg

DRUGS (3)
  1. DAONIL [Suspect]
     Route: 048
     Dates: start: 20040108, end: 20040108
  2. SIGMART [Suspect]
     Indication: ANGINA PECTORIS
     Route: 048
     Dates: start: 20000101
  3. KAIGEN [Suspect]
     Indication: NASOPHARYNGITIS
     Route: 048
     Dates: start: 20040103

REACTIONS (4)
  - ACCIDENTAL EXPOSURE [None]
  - LYMPHOCYTE STIMULATION TEST POSITIVE [None]
  - MEDICATION ERROR [None]
  - PULMONARY OEDEMA [None]
